FAERS Safety Report 9699839 (Version 1)
Quarter: 2013Q4

REPORT INFORMATION
  Report Type: Report from Study
  Country: US (occurrence: US)
  Receive Date: 20131120
  Receipt Date: 20131120
  Transmission Date: 20140711
  Serious: Yes (Other)
  Sender: FDA-Public Use
  Company Number: US-ROCHE-1304635

PATIENT
  Age: 20 Year
  Sex: Female

DRUGS (3)
  1. ACTEMRA [Suspect]
     Indication: JUVENILE IDIOPATHIC ARTHRITIS
     Route: 042
     Dates: start: 20130917
  2. ARAVA [Concomitant]
  3. TRAMADOL [Concomitant]

REACTIONS (2)
  - Paraesthesia [Recovered/Resolved]
  - Flank pain [Recovered/Resolved]
